FAERS Safety Report 17173392 (Version 1)
Quarter: 2019Q4

REPORT INFORMATION
  Report Type: Spontaneous
  Country: AU (occurrence: AU)
  Receive Date: 20191219
  Receipt Date: 20191219
  Transmission Date: 20200122
  Serious: Yes (Other)
  Sender: FDA-Public Use
  Company Number: AU-BAYER-2019-224048

PATIENT
  Age: 27 Year
  Sex: Female

DRUGS (3)
  1. NEXAVAR [Suspect]
     Active Substance: SORAFENIB
     Indication: DESMOID TUMOUR
     Dosage: DAILY DOSE 400 MG
     Route: 048
     Dates: start: 20190828, end: 2019
  2. FLUVOXAMINE [Concomitant]
     Active Substance: FLUVOXAMINE
     Indication: DEPRESSION
     Dosage: DAILY DOSE 50 MG
     Dates: start: 2018
  3. FLUVOXAMINE [Concomitant]
     Active Substance: FLUVOXAMINE
     Indication: ANXIETY

REACTIONS (3)
  - Product use in unapproved indication [None]
  - Malignant melanoma [Recovered/Resolved]
  - Off label use [None]

NARRATIVE: CASE EVENT DATE: 20190828
